FAERS Safety Report 5024877-4 (Version None)
Quarter: 2006Q2

REPORT INFORMATION
  Report Type: 
  Country: None (occurrence: None)
  Receive Date: 20060607
  Receipt Date: 20060517
  Transmission Date: 20061013
  Serious: Yes (Hospitalization)
  Sender: FDA-Public Use
  Company Number: ES200605004346

PATIENT
  Age: 55 Year
  Sex: Female

DRUGS (2)
  1. FORTEO [Suspect]
     Indication: OSTEOPOROSIS
     Dosage: 20 UG, DAILY (1/D), SUBCUTANEOUS
     Route: 058
     Dates: start: 20060330
  2. FORTEO PEN (250 MCG/ML) (FORTEO 250MCG/ML (3ML)) PEN, DISPOSABLE [Concomitant]

REACTIONS (1)
  - ARTHRITIS INFECTIVE [None]
